FAERS Safety Report 8489383-3 (Version None)
Quarter: 2012Q3

REPORT INFORMATION
  Report Type: 
  Country: None (occurrence: None)
  Receive Date: 20120705
  Receipt Date: 20120626
  Transmission Date: 20120928
  Serious: Yes (Other)
  Sender: FDA-Public Use
  Company Number: JP-VERTEX PHARMACEUTICALS INC.-AE-2012-009395

PATIENT
  Age: 60 Year
  Sex: Female

DRUGS (7)
  1. CALBLOCK [Concomitant]
     Route: 048
  2. TELAVIC (TELAPREVIR) [Suspect]
     Indication: HEPATITIS C
     Route: 048
     Dates: start: 20120619, end: 20120620
  3. DOXAZOSIN MESYLATE [Concomitant]
     Route: 048
  4. SELOKEN L [Concomitant]
     Route: 048
  5. REBETOL [Concomitant]
     Indication: HEPATITIS C
     Route: 048
     Dates: start: 20120619, end: 20120620
  6. PEG-INTRON [Concomitant]
     Indication: HEPATITIS C
     Route: 058
     Dates: start: 20120619, end: 20120620
  7. CANDESARTAN CILEXETIL [Concomitant]
     Route: 048

REACTIONS (5)
  - HEPATIC FUNCTION ABNORMAL [None]
  - RENAL IMPAIRMENT [None]
  - HYPERURICAEMIA [None]
  - VOMITING [None]
  - NAUSEA [None]
